FAERS Safety Report 4287082-5 (Version None)
Quarter: 2004Q1

REPORT INFORMATION
  Report Type: 
  Country: None (occurrence: None)
  Receive Date: 20040121
  Receipt Date: 20030619
  Transmission Date: 20041129
  Serious: Yes (Hospitalization)
  Sender: FDA-Public Use
  Company Number: A03200301352

PATIENT
  Age: 67 Year
  Sex: Male
  Weight: 77.1115 kg

DRUGS (3)
  1. PLAVIX [Suspect]
     Indication: STENT PLACEMENT
     Dosage: 75 MG QD - ORAL
     Route: 048
     Dates: start: 20030101, end: 20030519
  2. ACETYLSALICYLIC ACID SRT [Concomitant]
  3. METOPROLOL [Concomitant]

REACTIONS (4)
  - DUODENAL ULCER HAEMORRHAGE [None]
  - DYSPNOEA EXERTIONAL [None]
  - FLUSHING [None]
  - MYOCARDIAL INFARCTION [None]
